FAERS Safety Report 4757815-X (Version None)
Quarter: 2005Q3

REPORT INFORMATION
  Report Type: 
  Country: None (occurrence: None)
  Receive Date: 20050830
  Receipt Date: 20050812
  Transmission Date: 20060218
  Serious: Yes (Hospitalization)
  Sender: FDA-Public Use
  Company Number: 32291

PATIENT
  Age: 82 Year
  Sex: Male

DRUGS (3)
  1. (AZOPT) BRINZOLAMIDE 1% SUSPENSION [Suspect]
     Indication: GLAUCOMA
     Dosage: 1 GTT OS BID OPHT
     Route: 047
     Dates: start: 20041021
  2. LATANOPROST SODIUM 0.005% SOLUTION [Concomitant]
  3. CARTEOLOL HCL [Concomitant]

REACTIONS (1)
  - CEREBRAL INFARCTION [None]
